FAERS Safety Report 7517592-6 (Version None)
Quarter: 2011Q2

REPORT INFORMATION
  Report Type: 
  Country: None (occurrence: None)
  Receive Date: 20110601
  Receipt Date: 20110519
  Transmission Date: 20111010
  Serious: Yes (Hospitalization)
  Sender: FDA-Public Use
  Company Number: US-ELI_LILLY_AND_COMPANY-US201103006318

PATIENT
  Sex: Female
  Weight: 79 kg

DRUGS (3)
  1. FORTEO [Suspect]
     Dosage: 20 UG, QD
  2. FORTEO [Suspect]
     Indication: OSTEOPOROSIS
     Dosage: 20 UG, QD
     Dates: start: 20110101
  3. FORTEO [Suspect]
     Dosage: 20 UG, QD

REACTIONS (5)
  - VISUAL ACUITY REDUCED [None]
  - IMPAIRED HEALING [None]
  - DEVICE ISSUE [None]
  - ARTHRALGIA [None]
  - BACK PAIN [None]
